FAERS Safety Report 17548996 (Version 1)
Quarter: 2020Q1

REPORT INFORMATION
  Report Type: Spontaneous
  Country: GB (occurrence: GB)
  Receive Date: 20200317
  Receipt Date: 20200317
  Transmission Date: 20200409
  Serious: Yes (Other)
  Sender: FDA-Public Use
  Company Number: GB-TEVA-2020-GB-1201681

PATIENT
  Age: 84 Year
  Sex: Female
  Weight: 75 kg

DRUGS (12)
  1. NITROFURANTOIN. [Suspect]
     Active Substance: NITROFURANTOIN
     Dosage: 100 MG
     Route: 065
     Dates: start: 20200221
  2. CARMELLOSE SODIUM [Concomitant]
     Active Substance: CARBOXYMETHYLCELLULOSE SODIUM
     Dosage: THREE TO FOUR TIMES A DAY, 1 GTT
     Dates: start: 20191224
  3. OMEPRAZOLE. [Concomitant]
     Active Substance: OMEPRAZOLE
     Dosage: 1 DOSAGE FORMS
     Dates: start: 20180817
  4. DOUBLEBASE [Concomitant]
     Active Substance: ISOPROPYL MYRISTATE\PARAFFIN
     Dosage: USE AS DIRECTED
     Dates: start: 20180817
  5. CALCIUM CARBONATE. [Concomitant]
     Active Substance: CALCIUM CARBONATE
     Dosage: 1 DOSAGE FORMS
     Dates: start: 20180817, end: 20200221
  6. PREDNISOLONE. [Concomitant]
     Active Substance: PREDNISOLONE
     Dosage: USE AS DIRECTED REDUCING BY 1MG EVERY 2 WEEKS U...
     Dates: start: 20180817
  7. BISOPROLOL [Concomitant]
     Active Substance: BISOPROLOL
     Dosage: 1 DOSAGE FORMS
     Dates: start: 20180817
  8. FLUCONAZOLE. [Concomitant]
     Active Substance: FLUCONAZOLE
     Dosage: USE AS DIRECTED
     Dates: start: 20191129, end: 20191206
  9. SODIUM HYALURONATE [Concomitant]
     Active Substance: HYALURONATE SODIUM
     Dosage: THREE OR FOUR TIMES A DAY TO BO..., 1 GTT
     Dates: start: 20191112, end: 20191224
  10. COLECALCIFEROL [Concomitant]
     Active Substance: CHOLECALCIFEROL
     Dosage: 1 DOSAGE FORMS
     Dates: start: 20200221
  11. FOLIC ACID. [Concomitant]
     Active Substance: FOLIC ACID
     Dosage: EXCEPT ON DAY OF METHOTREXATE, 1 DOSAGE FORMS
     Dates: start: 20180817
  12. METHOTREXATE. [Concomitant]
     Active Substance: METHOTREXATE
     Dosage: WE DO NOT PRESCRIBE (GETS FROM HGTE), 15 MG
     Dates: start: 20180817

REACTIONS (1)
  - Rheumatoid arthritis [Recovered/Resolved]

NARRATIVE: CASE EVENT DATE: 20200221
